FAERS Safety Report 23196109 (Version 4)
Quarter: 2024Q1

REPORT INFORMATION
  Report Type: Spontaneous
  Country: US (occurrence: US)
  Receive Date: 20231117
  Receipt Date: 20240122
  Transmission Date: 20240410
  Serious: No
  Sender: FDA-Public Use
  Company Number: US-002147023-NVSC2023US245120

PATIENT
  Sex: Male

DRUGS (1)
  1. MEKINIST [Suspect]
     Active Substance: TRAMETINIB DIMETHYL SULFOXIDE
     Indication: Arteriovenous malformation
     Dosage: 9 ML, QD
     Route: 048
     Dates: start: 202309

REACTIONS (4)
  - Eye swelling [Unknown]
  - Urticaria [Unknown]
  - Furuncle [Unknown]
  - Skin lesion [Unknown]
